FAERS Safety Report 8166075-1 (Version None)
Quarter: 2012Q1

REPORT INFORMATION
  Report Type: 
  Country: None (occurrence: None)
  Receive Date: 20120227
  Receipt Date: 20110308
  Transmission Date: 20120608
  Serious: No
  Sender: FDA-Public Use
  Company Number: US-MYLANLABS-2011S1004666

PATIENT
  Age: 15 Year
  Sex: Male
  Weight: 52.62 kg

DRUGS (2)
  1. AMNESTEEM [Suspect]
     Indication: ACNE
     Route: 048
     Dates: start: 20110207, end: 20110304
  2. AMNESTEEM [Suspect]
     Route: 048
     Dates: start: 20110307

REACTIONS (3)
  - HEADACHE [None]
  - LIP SWELLING [None]
  - LIP DISCOLOURATION [None]
